FAERS Safety Report 9473741 (Version 2)
Quarter: 2013Q3

REPORT INFORMATION
  Report Type: Spontaneous
  Country: US (occurrence: US)
  Receive Date: 20130823
  Receipt Date: 20130823
  Transmission Date: 20140515
  Serious: No
  Sender: FDA-Public Use
  Company Number: US-BRISTOL-MYERS SQUIBB COMPANY-16946246

PATIENT
  Age: 22 Year
  Sex: Female

DRUGS (6)
  1. SPRYCEL [Suspect]
     Indication: CHRONIC MYELOID LEUKAEMIA
     Route: 048
     Dates: start: 201208
  2. ALEVE [Concomitant]
  3. TYLENOL [Concomitant]
  4. GABAPENTIN [Concomitant]
  5. POTASSIUM [Concomitant]
  6. FLOMAX [Concomitant]

REACTIONS (4)
  - Pain of skin [Not Recovered/Not Resolved]
  - Rash generalised [Not Recovered/Not Resolved]
  - Contusion [Not Recovered/Not Resolved]
  - Platelet count decreased [Not Recovered/Not Resolved]
